FAERS Safety Report 19629535 (Version 2)
Quarter: 2023Q2

REPORT INFORMATION
  Report Type: Other
  Country: US (occurrence: US)
  Receive Date: 20210729
  Receipt Date: 20230505
  Transmission Date: 20230722
  Serious: Yes (Other)
  Sender: FDA-Public Use
  Company Number: US-APOTEX-2021AP027527

PATIENT
  Age: 41 Year
  Sex: Male

DRUGS (5)
  1. RANITIDINE HYDROCHLORIDE [Suspect]
     Active Substance: RANITIDINE HYDROCHLORIDE
     Indication: Abdominal discomfort
     Dosage: UNK UNK, QD
     Route: 065
     Dates: start: 199901, end: 201601
  2. RANITIDINE HYDROCHLORIDE [Suspect]
     Active Substance: RANITIDINE HYDROCHLORIDE
     Indication: Gastrointestinal disorder
  3. RANITIDINE [Suspect]
     Active Substance: RANITIDINE
     Indication: Product used for unknown indication
     Dosage: UNK
     Route: 065
     Dates: start: 199901, end: 201601
  4. ZANTAC [Suspect]
     Active Substance: RANITIDINE HYDROCHLORIDE
     Indication: Gastrointestinal disorder
     Dosage: UNK UNK, QD
     Route: 065
     Dates: start: 199901, end: 201601
  5. ZANTAC [Suspect]
     Active Substance: RANITIDINE HYDROCHLORIDE
     Indication: Abdominal discomfort

REACTIONS (1)
  - Hepatic cancer [Not Recovered/Not Resolved]

NARRATIVE: CASE EVENT DATE: 20170501
